FAERS Safety Report 19027371 (Version 1)
Quarter: 2021Q1

REPORT INFORMATION
  Report Type: Spontaneous
  Country: CA (occurrence: CA)
  Receive Date: 20210318
  Receipt Date: 20210318
  Transmission Date: 20210420
  Serious: Yes (Life-Threatening, Hospitalization)
  Sender: FDA-Public Use
  Company Number: CA-PFIZER INC-2021282348

PATIENT
  Age: 3 Year
  Sex: Male
  Weight: 14 kg

DRUGS (5)
  1. ONCASPAR [Suspect]
     Active Substance: PEGASPARGASE
     Route: 065
  2. METHOTREXATE SODIUM. [Suspect]
     Active Substance: METHOTREXATE SODIUM
  3. CYTARABINE. [Suspect]
     Active Substance: CYTARABINE
  4. VINCRISTINE SULFATE. [Suspect]
     Active Substance: VINCRISTINE SULFATE
  5. IMATINIB. [Suspect]
     Active Substance: IMATINIB MESYLATE

REACTIONS (1)
  - Febrile neutropenia [Recovering/Resolving]
